FAERS Safety Report 24149380 (Version 2)
Quarter: 2024Q3

REPORT INFORMATION
  Report Type: Spontaneous
  Country: RS (occurrence: RS)
  Receive Date: 20240730
  Receipt Date: 20240810
  Transmission Date: 20241017
  Serious: Yes (Death, Hospitalization)
  Sender: TEVA
  Company Number: RS-TEVA-VS-3224105

PATIENT
  Age: 32 Year
  Sex: Male

DRUGS (12)
  1. CISPLATIN [Suspect]
     Active Substance: CISPLATIN
     Indication: Diffuse large B-cell lymphoma
     Dosage: DHAP THERAPY; RECEIVED 2CYCLES
     Route: 065
     Dates: start: 202302, end: 2023
  2. CYTARABINE [Suspect]
     Active Substance: CYTARABINE
     Indication: Diffuse large B-cell lymphoma
     Dosage: DHAP THERAPY; RECEIVED 2CYCLES
     Route: 065
     Dates: start: 202302, end: 2023
  3. ACYCLOVIR [Concomitant]
     Active Substance: ACYCLOVIR
     Indication: Anti-infective therapy
     Dates: start: 2023, end: 2023
  4. PREDNISONE [Suspect]
     Active Substance: PREDNISONE
     Indication: Diffuse large B-cell lymphoma
     Dosage: R-CHOP THERAPY; RECEIVED 6CYCLES
     Route: 065
     Dates: start: 202301, end: 2023
  5. DEXAMETHASONE [Suspect]
     Active Substance: DEXAMETHASONE
     Indication: Diffuse large B-cell lymphoma
     Dosage: DHAP THERAPY; RECEIVED 2CYCLES
     Route: 065
     Dates: start: 202302, end: 202305
  6. MEROPENEM [Concomitant]
     Active Substance: MEROPENEM
     Indication: Anti-infective therapy
     Dates: start: 2023, end: 2023
  7. DOXORUBICIN [Suspect]
     Active Substance: DOXORUBICIN
     Indication: Diffuse large B-cell lymphoma
     Dosage: R-CHOP THERAPY; RECEIVED 6CYCLES
     Route: 065
     Dates: start: 202301, end: 2023
  8. CYCLOPHOSPHAMIDE [Suspect]
     Active Substance: CYCLOPHOSPHAMIDE
     Indication: Diffuse large B-cell lymphoma
     Dosage: R-CHOP THERAPY; RECEIVED 6CYCLES
     Route: 065
     Dates: start: 202301, end: 2023
  9. RITUXIMAB [Suspect]
     Active Substance: RITUXIMAB
     Indication: Diffuse large B-cell lymphoma
     Dosage: R-CHOP THERAPY; RECEIVED 6CYCLES
     Route: 065
     Dates: start: 202301, end: 2023
  10. ONCOVIN [Suspect]
     Active Substance: VINCRISTINE SULFATE
     Indication: Diffuse large B-cell lymphoma
     Dosage: R-CHOP THERAPY; RECEIVED 6CYCLES
     Route: 065
     Dates: start: 202301, end: 2023
  11. FLUCONAZOLE [Concomitant]
     Active Substance: FLUCONAZOLE
     Indication: Anti-infective therapy
     Dates: start: 2023, end: 2023
  12. VANCOMYCIN [Concomitant]
     Active Substance: VANCOMYCIN
     Indication: Anti-infective therapy
     Dates: start: 2023, end: 2023

REACTIONS (2)
  - Haemophagocytic lymphohistiocytosis [Fatal]
  - Drug ineffective [Fatal]

NARRATIVE: CASE EVENT DATE: 20230101
